FAERS Safety Report 8786614 (Version 2)
Quarter: 2012Q4

REPORT INFORMATION
  Report Type: 
  Country: TR (occurrence: TR)
  Receive Date: 20120914
  Receipt Date: 20121024
  Transmission Date: 20130627
  Serious: Yes (Other)
  Sender: FDA-Public Use
  Company Number: PHHY2012TR078566

PATIENT
  Age: 34 Year
  Sex: Female

DRUGS (3)
  1. PAROXETINE [Suspect]
     Indication: DEPRESSION
     Dosage: 20 mg/day
  2. THYROXINE SODIUM [Concomitant]
     Indication: AUTOIMMUNE THYROIDITIS
  3. LAMOTRIGINE [Concomitant]
     Indication: DEPRESSION
     Dosage: 200 mg/day

REACTIONS (4)
  - Platelet function test abnormal [Recovered/Resolved]
  - Vaginal haemorrhage [Recovered/Resolved]
  - Conjunctival haemorrhage [Recovered/Resolved]
  - Epistaxis [Recovered/Resolved]
